FAERS Safety Report 8967316 (Version 1)
Quarter: 2012Q4

REPORT INFORMATION
  Report Type: 
  Country: US (occurrence: US)
  Receive Date: 20121214
  Receipt Date: 20121214
  Transmission Date: 20130627
  Serious: No
  Sender: FDA-Public Use
  Company Number: US-GLAXOSMITHKLINE-A0993114A

PATIENT
  Age: 5 Year

DRUGS (1)
  1. FLOVENT [Suspect]
     Route: 065
     Dates: end: 2011

REACTIONS (3)
  - Anxiety [Unknown]
  - Crying [Unknown]
  - Nightmare [Unknown]
